FAERS Safety Report 8961559 (Version 1)
Quarter: 2012Q4

REPORT INFORMATION
  Report Type: 
  Country: GB (occurrence: GB)
  Receive Date: 20121212
  Receipt Date: 20121212
  Transmission Date: 20130627
  Serious: Yes (Disabling)
  Sender: FDA-Public Use
  Company Number: GB-TEVA-374819ISR

PATIENT
  Age: 23 Year
  Sex: Female
  Weight: 60 kg

DRUGS (9)
  1. SERTRALINE [Suspect]
     Indication: DEPRESSION
     Dosage: 50 Milligram Daily;
     Route: 048
     Dates: start: 2008, end: 20121005
  2. SERTRALINE [Suspect]
     Indication: ANXIETY
  3. RISPERIDONE [Concomitant]
     Indication: MAJOR DEPRESSION
     Route: 048
     Dates: start: 200701
  4. PIPAMPERONE [Concomitant]
     Indication: MAJOR DEPRESSION
     Route: 048
     Dates: start: 200701
  5. VENLAFAXINE [Concomitant]
     Indication: MAJOR DEPRESSION
     Route: 048
     Dates: start: 200701
  6. MIRTAZAPINE [Concomitant]
     Indication: MAJOR DEPRESSION
     Route: 048
     Dates: start: 200701
  7. PROMETHAZINE [Concomitant]
     Route: 048
     Dates: start: 2009, end: 2010
  8. LEVOTHYROXINE [Concomitant]
     Dosage: UNK
  9. DEPO-PROVERA [Concomitant]
     Dosage: UNK

REACTIONS (1)
  - Tic [Not Recovered/Not Resolved]
